FAERS Safety Report 13084383 (Version 1)
Quarter: 2017Q1

REPORT INFORMATION
  Report Type: Spontaneous
  Country: US (occurrence: US)
  Receive Date: 20170103
  Receipt Date: 20170103
  Transmission Date: 20170428
  Serious: No
  Sender: FDA-Public Use
  Company Number: None

PATIENT
  Age: 33 Year
  Sex: Female
  Weight: 74.25 kg

DRUGS (2)
  1. METRONIDAZOLE. [Concomitant]
     Active Substance: METRONIDAZOLE
  2. MIRENA [Suspect]
     Active Substance: LEVONORGESTREL
     Indication: CONTRACEPTION
     Dosage: QUANTITY:1 INTRAUTERINE;OTHER FREQUENCY:PLACED ONCE;?
     Route: 067
     Dates: start: 20161202, end: 20161207

REACTIONS (3)
  - Medical device pain [None]
  - Back pain [None]
  - Headache [None]

NARRATIVE: CASE EVENT DATE: 20161205
